FAERS Safety Report 10449839 (Version 1)
Quarter: 2014Q3

REPORT INFORMATION
  Report Type: Spontaneous
  Country: US (occurrence: US)
  Receive Date: 20140912
  Receipt Date: 20140912
  Transmission Date: 20150326
  Serious: No
  Sender: FDA-Public Use
  Company Number: US-INCYTE CORPORATION-2014IN002116

PATIENT
  Sex: Female
  Weight: 49.89 kg

DRUGS (1)
  1. JAKAFI [Suspect]
     Active Substance: RUXOLITINIB
     Indication: MYELOFIBROSIS
     Dosage: 5 MG, 5 TABS DAILY
     Route: 048
     Dates: start: 20130930

REACTIONS (3)
  - Muscle spasms [Unknown]
  - Neuropathy peripheral [Unknown]
  - Urinary tract infection [Unknown]
